FAERS Safety Report 7201486-X (Version None)
Quarter: 2010Q4

REPORT INFORMATION
  Report Type: 
  Country: None (occurrence: None)
  Receive Date: 20101216
  Receipt Date: 20101207
  Transmission Date: 20110411
  Serious: Yes (Death, Other)
  Sender: FDA-Public Use
  Company Number: TAJPN-10-0705

PATIENT
  Age: 55 Year
  Sex: Female
  Weight: 54 kg

DRUGS (1)
  1. ABRAXANE [Suspect]
     Indication: BREAST CANCER
     Dosage: (400 MG)
     Dates: start: 20101013, end: 20101013

REACTIONS (3)
  - BREAST CANCER METASTATIC [None]
  - JAUNDICE CHOLESTATIC [None]
  - MALIGNANT NEOPLASM PROGRESSION [None]
